FAERS Safety Report 10485294 (Version 1)
Quarter: 2014Q3

REPORT INFORMATION
  Report Type: Report from Study
  Country: BR (occurrence: BR)
  Receive Date: 20140930
  Receipt Date: 20140930
  Transmission Date: 20150326
  Serious: Yes (Other)
  Sender: FDA-Public Use
  Company Number: PHHY2014BR127109

PATIENT
  Age: 84 Year
  Sex: Female

DRUGS (6)
  1. RITMONORM [Concomitant]
     Indication: ARRHYTHMIA
     Dosage: 1 DF, DAILY
     Route: 048
  2. ALENIA [Concomitant]
     Active Substance: BUDESONIDE\FORMOTEROL FUMARATE
     Indication: ASTHMA
     Dosage: 2 DF, DAILY
     Route: 055
  3. RITMONORM [Concomitant]
     Indication: CARDIAC MURMUR
  4. OMEPRAZOLE. [Concomitant]
     Active Substance: OMEPRAZOLE
     Indication: GASTROINTESTINAL DISORDER
     Dosage: 1 DF, DAILY
     Route: 048
     Dates: start: 201404
  5. ELIDEL [Suspect]
     Active Substance: PIMECROLIMUS
     Indication: VITILIGO
     Dosage: UNK, QD
     Route: 062
  6. NEOTIAPIM [Suspect]
     Active Substance: QUETIAPINE
     Indication: CEREBRAL DISORDER
     Dosage: 2 DF, DAILY
     Route: 048
     Dates: start: 201403

REACTIONS (6)
  - Weight decreased [Recovering/Resolving]
  - Gastrointestinal infection [Recovered/Resolved]
  - Pigmentation disorder [Not Recovered/Not Resolved]
  - Muscle disorder [Not Recovered/Not Resolved]
  - Feeling abnormal [Recovering/Resolving]
  - Arthralgia [Not Recovered/Not Resolved]

NARRATIVE: CASE EVENT DATE: 201403
